FAERS Safety Report 7647730-6 (Version None)
Quarter: 2011Q3

REPORT INFORMATION
  Report Type: 
  Country: None (occurrence: None)
  Receive Date: 20110801
  Receipt Date: 20110801
  Transmission Date: 20111222
  Serious: Yes (Life-Threatening, Other)
  Sender: FDA-Public Use
  Company Number: None

PATIENT
  Age: 48 Year
  Sex: Female
  Weight: 83.914 kg

DRUGS (1)
  1. LYRICA [Suspect]
     Indication: FIBROMYALGIA
     Dosage: 2 CAPSULES  150 MG
     Route: 048
     Dates: start: 20080801, end: 20100615

REACTIONS (7)
  - VOMITING [None]
  - BLOOD CHROMOGRANIN A INCREASED [None]
  - HEADACHE [None]
  - ABDOMINAL PAIN UPPER [None]
  - SEROTONIN SYNDROME [None]
  - DIARRHOEA [None]
  - ENDOCRINE NEOPLASM [None]
